FAERS Safety Report 23753932 (Version 1)
Quarter: 2024Q2

REPORT INFORMATION
  Report Type: Spontaneous
  Country: ES (occurrence: ES)
  Receive Date: 20240417
  Receipt Date: 20240417
  Transmission Date: 20240716
  Serious: Yes (Other)
  Sender: FDA-Public Use
  Company Number: None

PATIENT
  Age: 38 Year
  Sex: Male

DRUGS (1)
  1. IBUPROFEN [Suspect]
     Active Substance: IBUPROFEN
     Indication: Product used for unknown indication
     Dosage: IBUPROFENO 30 TABLETS
     Route: 065
     Dates: start: 20240229

REACTIONS (2)
  - Pruritus [Unknown]
  - Lip oedema [Unknown]

NARRATIVE: CASE EVENT DATE: 20240229
